FAERS Safety Report 8512542-8 (Version None)
Quarter: 2012Q3

REPORT INFORMATION
  Report Type: 
  Country: None (occurrence: None)
  Receive Date: 20120716
  Receipt Date: 20120709
  Transmission Date: 20120928
  Serious: Yes (Death)
  Sender: FDA-Public Use
  Company Number: US-ROCHE-1085880

PATIENT
  Sex: Female

DRUGS (2)
  1. AVASTIN [Suspect]
     Indication: BREAST CANCER METASTATIC
     Dates: start: 20111014, end: 20111219
  2. DOCETAXEL [Concomitant]
     Indication: BREAST CANCER METASTATIC
     Dates: start: 20111014, end: 20111219

REACTIONS (2)
  - DRUG INEFFECTIVE [None]
  - DEATH [None]
